FAERS Safety Report 9890050 (Version 1)
Quarter: 2014Q1

REPORT INFORMATION
  Report Type: Spontaneous
  Country: US (occurrence: US)
  Receive Date: 20140212
  Receipt Date: 20140212
  Transmission Date: 20141002
  Serious: No
  Sender: FDA-Public Use
  Company Number: US-BIOGENIDEC-2014BI011023

PATIENT
  Age: 51 Year
  Sex: Female

DRUGS (2)
  1. TECFIDERA [Suspect]
     Indication: MULTIPLE SCLEROSIS
     Route: 048
     Dates: start: 20140117, end: 20140123
  2. TECFIDERA [Suspect]
     Indication: MULTIPLE SCLEROSIS
     Route: 048
     Dates: start: 20140124

REACTIONS (6)
  - Decreased appetite [Unknown]
  - Abdominal distension [Unknown]
  - Constipation [Unknown]
  - Flushing [Unknown]
  - Abdominal pain upper [Unknown]
  - Vomiting [Unknown]
